FAERS Safety Report 7357877-X (Version None)
Quarter: 2011Q1

REPORT INFORMATION
  Report Type: 
  Country: None (occurrence: None)
  Receive Date: 20110317
  Receipt Date: 20110314
  Transmission Date: 20110831
  Serious: Yes (Other)
  Sender: FDA-Public Use
  Company Number: BE-PFIZER INC-2011011350

PATIENT
  Age: 77 Year
  Sex: Male
  Weight: 75 kg

DRUGS (3)
  1. VANCOMYCIN [Concomitant]
     Indication: WOUND INFECTION STAPHYLOCOCCAL
     Route: 042
  2. SULFAMETHOXAZOLE AND TRIMETHOPRIM DOUBLE STRENGTH [Concomitant]
  3. ZYVOX [Suspect]
     Dosage: 600 MG, 2X/DAY
     Route: 048
     Dates: start: 20100507, end: 20100617

REACTIONS (5)
  - GLOSSITIS [None]
  - DYSGEUSIA [None]
  - ANAEMIA [None]
  - HAIR GROWTH ABNORMAL [None]
  - TONGUE DISCOLOURATION [None]
